FAERS Safety Report 9502206 (Version 1)
Quarter: 2013Q3

REPORT INFORMATION
  Report Type: Spontaneous
  Country: FR (occurrence: FR)
  Receive Date: 20130906
  Receipt Date: 20130906
  Transmission Date: 20140515
  Serious: Yes (Life-Threatening, Hospitalization)
  Sender: FDA-Public Use
  Company Number: FR-ROCHE-1270895

PATIENT
  Age: 82 Year
  Sex: Female

DRUGS (1)
  1. ROCEPHINE [Suspect]
     Indication: LUNG INFECTION
     Route: 042
     Dates: start: 20121021, end: 20121029

REACTIONS (1)
  - Tubulointerstitial nephritis [Recovered/Resolved]
